FAERS Safety Report 19968149 (Version 1)
Quarter: 2021Q4

REPORT INFORMATION
  Report Type: Spontaneous
  Country: US (occurrence: US)
  Receive Date: 20211019
  Receipt Date: 20211019
  Transmission Date: 20220303
  Serious: No
  Sender: FDA-Public Use
  Company Number: None

PATIENT

DRUGS (2)
  1. LEMTRADA [Suspect]
     Active Substance: ALEMTUZUMAB
  2. LEMTRADA [Concomitant]
     Active Substance: ALEMTUZUMAB

REACTIONS (2)
  - Bedridden [None]
  - Muscular weakness [None]
